FAERS Safety Report 5636697-8 (Version None)
Quarter: 2008Q1

REPORT INFORMATION
  Report Type: 
  Country: None (occurrence: None)
  Receive Date: 20080225
  Receipt Date: 20080221
  Transmission Date: 20080703
  Serious: Yes (Life-Threatening, Hospitalization)
  Sender: FDA-Public Use
  Company Number: GB-ASTRAZENECA-2007GB00599

PATIENT
  Age: 50 Year
  Sex: Male

DRUGS (4)
  1. ATENOLOL [Suspect]
     Indication: ANGINA PECTORIS
     Route: 048
  2. AMLODIPINE [Suspect]
     Indication: ANGINA PECTORIS
  3. ARTHROTEC [Suspect]
     Indication: OSTEOARTHRITIS
     Route: 065
  4. DICLOFENAC SODIUM [Suspect]
     Indication: OSTEOARTHRITIS

REACTIONS (14)
  - ACCIDENTAL OVERDOSE [None]
  - ATRIOVENTRICULAR BLOCK COMPLETE [None]
  - BACK PAIN [None]
  - BRADYCARDIA [None]
  - CARDIOGENIC SHOCK [None]
  - CIRCULATORY COLLAPSE [None]
  - DIZZINESS [None]
  - DRUG TOXICITY [None]
  - ELECTROCARDIOGRAM ABNORMAL [None]
  - HYPOTENSION [None]
  - METABOLIC ACIDOSIS [None]
  - MYOCARDIAL INFARCTION [None]
  - NEPHROPATHY TOXIC [None]
  - RENAL FAILURE ACUTE [None]
